FAERS Safety Report 4520493-9 (Version None)
Quarter: 2004Q4

REPORT INFORMATION
  Report Type: 
  Country: None (occurrence: None)
  Receive Date: 20041203
  Receipt Date: 20041104
  Transmission Date: 20050328
  Serious: Yes (Other)
  Sender: FDA-Public Use
  Company Number: 702370

PATIENT
  Age: 60 Year
  Sex: Male

DRUGS (4)
  1. AMEVIVE [Suspect]
     Indication: PSORIASIS
     Dosage: 15 MG; QW; IM
     Route: 030
     Dates: start: 20031217, end: 20040303
  2. AVELOX [Concomitant]
  3. CAPTOPRIL [Concomitant]
  4. NARCOTIC PATCH [Concomitant]

REACTIONS (2)
  - CD4 LYMPHOCYTES DECREASED [None]
  - SQUAMOUS CELL CARCINOMA [None]
